FAERS Safety Report 10112049 (Version 5)
Quarter: 2016Q2

REPORT INFORMATION
  Report Type: Spontaneous
  Country: FR (occurrence: FR)
  Receive Date: 20140425
  Receipt Date: 20160621
  Transmission Date: 20160815
  Serious: Yes (Hospitalization)
  Sender: FDA-Public Use
  Company Number: FR-IPSEN BIOPHARMACEUTICALS, INC.-2014-1165

PATIENT
  Age: 4 Month
  Sex: Female
  Weight: 3.8 kg

DRUGS (10)
  1. INCRELEX [Suspect]
     Active Substance: MECASERMIN
     Dosage: NOT REPORTED
  2. INEXIUM [Suspect]
     Active Substance: ESOMEPRAZOLE
     Indication: INSULIN RESISTANCE SYNDROME
     Route: 048
     Dates: start: 20140123
  3. FERROSTRANE [Suspect]
     Active Substance: SODIUM FEREDETATE
     Indication: INSULIN RESISTANCE SYNDROME
     Dosage: NOT REPORTED
     Route: 048
     Dates: start: 201311
  4. INCRELEX [Suspect]
     Active Substance: MECASERMIN
     Indication: INSULIN RESISTANCE SYNDROME
     Route: 058
     Dates: start: 20140212
  5. METFORMIN [Suspect]
     Active Substance: METFORMIN HYDROCHLORIDE
     Route: 048
  6. SPECIAFOLDINE [Suspect]
     Active Substance: FOLIC ACID
     Indication: INSULIN RESISTANCE SYNDROME
     Dosage: NOT REPORTED
     Route: 048
     Dates: start: 201311
  7. L-THYROXINE [Suspect]
     Active Substance: LEVOTHYROXINE
     Indication: INSULIN RESISTANCE SYNDROME
     Dosage: 3 DROPS
     Route: 048
     Dates: start: 201311
  8. METFORMIN [Suspect]
     Active Substance: METFORMIN HYDROCHLORIDE
     Route: 048
  9. INCRELEX [Suspect]
     Active Substance: MECASERMIN
     Indication: PRODUCT USE ISSUE
     Route: 058
  10. METFORMIN [Suspect]
     Active Substance: METFORMIN HYDROCHLORIDE
     Indication: HYPERINSULINAEMIA
     Route: 048
     Dates: start: 20140122

REACTIONS (4)
  - Condition aggravated [Recovering/Resolving]
  - Wrong technique in product usage process [Unknown]
  - Hypertrophic cardiomyopathy [Recovering/Resolving]
  - Lymphoid tissue hyperplasia [Unknown]

NARRATIVE: CASE EVENT DATE: 20140312
